FAERS Safety Report 6020118-X (Version None)
Quarter: 2008Q4

REPORT INFORMATION
  Report Type: 
  Country: None (occurrence: None)
  Receive Date: 20081226
  Receipt Date: 20081219
  Transmission Date: 20090506
  Serious: Yes (Life-Threatening)
  Sender: FDA-Public Use
  Company Number: RU-BAYER-200833298GPV

PATIENT
  Age: 47 Year
  Sex: Female

DRUGS (1)
  1. YARINA [Suspect]
     Indication: ORAL CONTRACEPTION
     Dosage: TOTAL DAILY DOSE: 1 DF
     Route: 048
     Dates: start: 20081211, end: 20081211

REACTIONS (1)
  - ANGIOEDEMA [None]
